FAERS Safety Report 16650874 (Version 2)
Quarter: 2020Q3

REPORT INFORMATION
  Report Type: Report from Study
  Country: AU (occurrence: AU)
  Receive Date: 20190731
  Receipt Date: 20200814
  Transmission Date: 20201102
  Serious: Yes (Hospitalization)
  Sender: FDA-Public Use
  Company Number: AU-BIOGEN-2019BI00766678

PATIENT
  Age: 49 Year
  Sex: Female

DRUGS (4)
  1. TECFIDERA [Suspect]
     Active Substance: DIMETHYL FUMARATE
     Indication: MULTIPLE SCLEROSIS
     Dosage: MAINTENANCE DOSE
     Route: 048
     Dates: start: 20150501
  2. ASPRIN [Concomitant]
     Active Substance: ASPIRIN
     Indication: PREMEDICATION
     Route: 065
     Dates: start: 20190718
  3. CALCIUM [Concomitant]
     Active Substance: CALCIUM
     Indication: PRODUCT USED FOR UNKNOWN INDICATION
     Route: 065
  4. CELEBREX [Concomitant]
     Active Substance: CELECOXIB
     Indication: OSTEOARTHRITIS
     Route: 065
     Dates: start: 202007

REACTIONS (9)
  - Vaginal prolapse [Recovered/Resolved]
  - Headache [Recovered/Resolved]
  - Post procedural complication [Not Recovered/Not Resolved]
  - Hot flush [Not Recovered/Not Resolved]
  - Central nervous system lesion [Unknown]
  - Dyspepsia [Unknown]
  - Acne [Unknown]
  - Facial pain [Not Recovered/Not Resolved]
  - Menopausal symptoms [Unknown]

NARRATIVE: CASE EVENT DATE: 20150501
